FAERS Safety Report 19609712 (Version 9)
Quarter: 2022Q2

REPORT INFORMATION
  Report Type: Report from Study
  Country: US (occurrence: US)
  Receive Date: 20210726
  Receipt Date: 20220421
  Transmission Date: 20220721
  Serious: Yes (Other)
  Sender: FDA-Public Use
  Company Number: NVSC2021US157419

PATIENT
  Sex: Female

DRUGS (1)
  1. COSENTYX [Suspect]
     Active Substance: SECUKINUMAB
     Indication: Psoriasis
     Dosage: 300 MG, QMO (EVERY 4 WEEKS)
     Route: 058

REACTIONS (10)
  - Urinary tract infection fungal [Recovering/Resolving]
  - Dysuria [Unknown]
  - Urethral pain [Unknown]
  - Neoplasm malignant [Unknown]
  - Skin cancer [Unknown]
  - Psoriatic arthropathy [Unknown]
  - Bladder pain [Unknown]
  - Renal disorder [Unknown]
  - Psoriasis [Unknown]
  - Therapeutic product effect incomplete [Unknown]
